FAERS Safety Report 12570188 (Version 1)
Quarter: 2016Q3

REPORT INFORMATION
  Report Type: Spontaneous
  Country: IN (occurrence: None)
  Receive Date: 20160718
  Receipt Date: 20160718
  Transmission Date: 20161109
  Serious: No
  Sender: FDA-Public Use
  Company Number: None

PATIENT
  Age: 28 Year
  Sex: Female
  Weight: 46 kg

DRUGS (1)
  1. COBADEX FORTE GLAXO SMITHKLINE [Suspect]
     Active Substance: ASCORBIC ACID\VITAMIN B COMPLEX
     Indication: VITAMIN SUPPLEMENTATION
     Dosage: 2 CAPSULE(S)
     Dates: start: 20160716

REACTIONS (2)
  - Product leakage [None]
  - Product physical issue [None]

NARRATIVE: CASE EVENT DATE: 20160716
